FAERS Safety Report 20899204 (Version 1)
Quarter: 2022Q2

REPORT INFORMATION
  Report Type: Spontaneous
  Country: AT (occurrence: AT)
  Receive Date: 20220601
  Receipt Date: 20220601
  Transmission Date: 20220721
  Serious: Yes (Hospitalization, Other)
  Sender: FDA-Public Use
  Company Number: AT-VELOXIS PHARMACEUTICALS-2022VELAT-000349

PATIENT
  Age: 51 Year
  Sex: Male
  Weight: 78.9 kg

DRUGS (1)
  1. ENVARSUS XR [Suspect]
     Active Substance: TACROLIMUS
     Indication: Product used for unknown indication
     Dosage: 7 MILLIGRAM, TOTAL
     Route: 048
     Dates: start: 20220419

REACTIONS (2)
  - Upper limb fracture [Unknown]
  - Seizure [Recovered/Resolved]

NARRATIVE: CASE EVENT DATE: 20220419
